FAERS Safety Report 5768737-X (Version None)
Quarter: 2008Q2

REPORT INFORMATION
  Report Type: 
  Country: None (occurrence: None)
  Receive Date: 20080612
  Receipt Date: 20080311
  Transmission Date: 20081010
  Serious: No
  Sender: FDA-Public Use
  Company Number: US-BOEHRINGER INGELHEIM GMBH, GERMANY-2007-BP-16486BP

PATIENT
  Sex: Female
  Weight: 109 kg

DRUGS (16)
  1. MIRAPEX [Suspect]
     Indication: RESTLESS LEGS SYNDROME
     Dates: start: 20030326, end: 20051001
  2. REQUIP [Concomitant]
     Indication: RESTLESS LEGS SYNDROME
  3. AMBIEN [Concomitant]
     Indication: INSOMNIA
  4. DIAZEPAM [Concomitant]
  5. ARISTOCORT [Concomitant]
  6. ERYTHROMYCIN [Concomitant]
  7. TRIAMTERENE [Concomitant]
  8. BUPROPION HCL [Concomitant]
  9. CLONAZEPAM [Concomitant]
  10. CARBIDOPA AND LEVODOPA [Concomitant]
  11. TOPAMAX [Concomitant]
  12. DIFLUNISAL [Concomitant]
  13. TRIAZOLAM [Concomitant]
  14. PROPOXYPHENE HYDROCHLORIDE [Concomitant]
  15. MERIDIA [Concomitant]
  16. CLINDAMYCIN [Concomitant]

REACTIONS (6)
  - DEPRESSION [None]
  - EMOTIONAL DISTRESS [None]
  - HYPERPHAGIA [None]
  - OBSESSIVE-COMPULSIVE DISORDER [None]
  - PATHOLOGICAL GAMBLING [None]
  - WEIGHT INCREASED [None]
